FAERS Safety Report 12779961 (Version 1)
Quarter: 2016Q3

REPORT INFORMATION
  Report Type: Spontaneous
  Country: US (occurrence: US)
  Receive Date: 20160922
  Receipt Date: 20160922
  Transmission Date: 20161109
  Serious: No
  Sender: FDA-Public Use
  Company Number: None

PATIENT
  Sex: Male
  Weight: 73.03 kg

DRUGS (1)
  1. TEMOZOLOMIDE 270 MG TEVA [Suspect]
     Active Substance: TEMOZOLOMIDE
     Indication: BRAIN NEOPLASM MALIGNANT
     Dosage: 270 MG (250 AND 20 MG CAPS) FOR 5 D PO
     Route: 048
     Dates: start: 20160715

REACTIONS (2)
  - Pyrexia [None]
  - Asthenia [None]
